FAERS Safety Report 5318414-4 (Version None)
Quarter: 2007Q2

REPORT INFORMATION
  Report Type: 
  Country: None (occurrence: None)
  Receive Date: 20070507
  Receipt Date: 20070430
  Transmission Date: 20071010
  Serious: Yes (Hospitalization)
  Sender: FDA-Public Use
  Company Number: GB-MERCK-0605GBR00152B1

PATIENT
  Sex: Female
  Weight: 3 kg

DRUGS (1)
  1. PROPECIA [Suspect]
     Route: 064

REACTIONS (1)
  - BREECH PRESENTATION [None]
